FAERS Safety Report 23718695 (Version 1)
Quarter: 2024Q2

REPORT INFORMATION
  Report Type: Spontaneous
  Country: CA (occurrence: CA)
  Receive Date: 20240408
  Receipt Date: 20240408
  Transmission Date: 20240716
  Serious: Yes (Death, Other)
  Sender: FDA-Public Use
  Company Number: CA-AstraZeneca-2024A081066

PATIENT
  Sex: Female
  Weight: 81 kg

DRUGS (1)
  1. TRASTUZUMAB DERUXTECAN [Suspect]
     Active Substance: TRASTUZUMAB DERUXTECAN
     Indication: Breast cancer metastatic
     Dosage: 470 MG, ONCE EVERY 3 WK
     Route: 042

REACTIONS (3)
  - Ejection fraction decreased [Fatal]
  - Malaise [Fatal]
  - Malignant neoplasm progression [Fatal]
